FAERS Safety Report 7297308-1 (Version None)
Quarter: 2011Q1

REPORT INFORMATION
  Report Type: 
  Country: None (occurrence: None)
  Receive Date: 20110207
  Receipt Date: 20110126
  Transmission Date: 20110831
  Serious: Yes (Hospitalization)
  Sender: FDA-Public Use
  Company Number: 026327

PATIENT
  Sex: Male

DRUGS (1)
  1. CIMZIA [Suspect]
     Indication: CROHN'S DISEASE
     Dosage: (SUBCUTANEOUS)
     Route: 058
     Dates: start: 20100203

REACTIONS (10)
  - WEIGHT DECREASED [None]
  - INFLUENZA [None]
  - BLOOD CHLORIDE ABNORMAL [None]
  - BLOOD ELECTROLYTES ABNORMAL [None]
  - NAUSEA [None]
  - BLOOD SODIUM ABNORMAL [None]
  - DEHYDRATION [None]
  - DECREASED APPETITE [None]
  - LETHARGY [None]
  - MALABSORPTION [None]
